FAERS Safety Report 6998635-5 (Version None)
Quarter: 2010Q3

REPORT INFORMATION
  Report Type: 
  Country: None (occurrence: None)
  Receive Date: 20100920
  Receipt Date: 20100121
  Transmission Date: 20110219
  Serious: No
  Sender: FDA-Public Use
  Company Number: US-ASTRAZENECA-2010SE03140

PATIENT
  Age: 49 Year
  Sex: Male
  Weight: 77.1 kg

DRUGS (2)
  1. SEROQUEL [Suspect]
     Indication: BIPOLAR DISORDER
     Route: 048
     Dates: start: 20091201, end: 20100118
  2. LITHIUM CARBONATE [Concomitant]

REACTIONS (10)
  - CHEST DISCOMFORT [None]
  - DISTURBANCE IN ATTENTION [None]
  - DYSGEUSIA [None]
  - DYSPNOEA [None]
  - FEELING DRUNK [None]
  - HYPERHIDROSIS [None]
  - PANIC ATTACK [None]
  - SLEEP DISORDER [None]
  - SOMNOLENCE [None]
  - SPEECH DISORDER [None]
